FAERS Safety Report 7203393-5 (Version None)
Quarter: 2010Q4

REPORT INFORMATION
  Report Type: 
  Country: None (occurrence: None)
  Receive Date: 20101220
  Receipt Date: 20101203
  Transmission Date: 20110411
  Serious: Yes (Hospitalization)
  Sender: FDA-Public Use
  Company Number: IPC201012-000321

PATIENT
  Age: 30 Year
  Sex: Female

DRUGS (3)
  1. METOPROLOL TARTRATE [Suspect]
  2. DILTIAZEM [Suspect]
  3. AMIODARONE [Suspect]

REACTIONS (5)
  - ANURIA [None]
  - CARDIOACTIVE DRUG LEVEL INCREASED [None]
  - CARDIOGENIC SHOCK [None]
  - CONFUSIONAL STATE [None]
  - MULTIPLE DRUG OVERDOSE INTENTIONAL [None]
